FAERS Safety Report 8447623-0 (Version None)
Quarter: 2012Q2

REPORT INFORMATION
  Report Type: 
  Country: None (occurrence: None)
  Receive Date: 20120619
  Receipt Date: 20120614
  Transmission Date: 20120825
  Serious: Yes (Life-Threatening)
  Sender: FDA-Public Use
  Company Number: GB-TEVA-343644USA

PATIENT
  Age: 64 Year
  Sex: Male

DRUGS (9)
  1. ACYCLOVIR [Concomitant]
  2. THALIDOMIDE [Suspect]
     Indication: MULTIPLE MYELOMA
     Dosage: REGIMEN 1
  3. DEXAMETHASONE [Suspect]
     Indication: MULTIPLE MYELOMA
  4. FLUCONAZOLE [Concomitant]
  5. LANSOPRAZOLE [Concomitant]
  6. TREANDA [Suspect]
     Indication: MULTIPLE MYELOMA
     Dosage: CYCLIC
     Route: 042
     Dates: start: 20110928, end: 20120509
  7. COTRIM [Concomitant]
  8. TREANDA [Suspect]
     Dosage: CYCLIC, REGIMEN 2
     Route: 042
  9. ONDANSETRON [Concomitant]

REACTIONS (4)
  - BLOOD MAGNESIUM DECREASED [None]
  - DIARRHOEA [None]
  - ELECTROLYTE IMBALANCE [None]
  - HYPOKALAEMIA [None]
